FAERS Safety Report 9148029 (Version 1)
Quarter: 2013Q1

REPORT INFORMATION
  Report Type: Spontaneous
  Country: AU (occurrence: AU)
  Receive Date: 20130308
  Receipt Date: 20130308
  Transmission Date: 20140127
  Serious: Yes (Other)
  Sender: FDA-Public Use
  Company Number: AU-AMGEN-AUSSP2013009896

PATIENT
  Sex: Male
  Weight: 66 kg

DRUGS (4)
  1. VECTIBIX [Suspect]
     Indication: RECTAL CANCER
     Dosage: 434 MG, Q2WK
  2. 5 FU [Concomitant]
     Indication: NEOPLASM MALIGNANT
     Dosage: UNK
  3. IRINOTECAN [Concomitant]
     Indication: NEOPLASM MALIGNANT
     Dosage: UNK
  4. LEUCOVORIN                         /00566701/ [Concomitant]
     Indication: NEOPLASM MALIGNANT
     Dosage: UNK

REACTIONS (3)
  - Disease progression [Unknown]
  - No therapeutic response [Unknown]
  - Weight decreased [Unknown]
